FAERS Safety Report 9399812 (Version 1)
Quarter: 2013Q3

REPORT INFORMATION
  Report Type: Spontaneous
  Country: CA (occurrence: CA)
  Receive Date: 20130715
  Receipt Date: 20130715
  Transmission Date: 20140515
  Serious: Yes (Other)
  Sender: FDA-Public Use
  Company Number: PHHY2013CA073791

PATIENT
  Sex: Female

DRUGS (3)
  1. CARBAMAZEPINE [Suspect]
     Dosage: UNK UKN, UNK
  2. LORAZEPAM [Suspect]
     Dosage: UNK UKN, UNK
  3. RISPERDAL [Suspect]
     Dosage: UNK UKN, UNK

REACTIONS (2)
  - Cardiac arrest [Recovered/Resolved]
  - Brain injury [Recovered/Resolved]
